FAERS Safety Report 7907512-4 (Version None)
Quarter: 2011Q4

REPORT INFORMATION
  Report Type: 
  Country: None (occurrence: None)
  Receive Date: 20111110
  Receipt Date: 20111031
  Transmission Date: 20120403
  Serious: Yes (Other)
  Sender: FDA-Public Use
  Company Number: US-BAYER-2011-014114

PATIENT
  Age: 34 Year
  Sex: Female
  Weight: 59.41 kg

DRUGS (5)
  1. YAZ [Suspect]
     Indication: ACNE
     Dosage: UNK
     Dates: start: 20070223, end: 20090401
  2. HYDROCODONE BITARTRATE AND ACETAMINOPHEN [Concomitant]
     Dosage: UNK UNK, PRN
     Route: 048
  3. CALCIUM +VIT D [Concomitant]
  4. YAZ [Suspect]
     Indication: HORMONE LEVEL ABNORMAL
  5. MULTI-VITAMIN [Concomitant]

REACTIONS (4)
  - CHOLECYSTITIS CHRONIC [None]
  - MIGRAINE [None]
  - GALLBLADDER DISORDER [None]
  - PAIN [None]
